FAERS Safety Report 24705903 (Version 1)
Quarter: 2024Q4

REPORT INFORMATION
  Report Type: Report from Study
  Country: US (occurrence: US)
  Receive Date: 20241206
  Receipt Date: 20241206
  Transmission Date: 20250115
  Serious: Yes (Other)
  Sender: BAUSCH AND LOMB
  Company Number: US-BAUSCHBL-2024BNL038291

PATIENT
  Age: 54 Year
  Sex: Male

DRUGS (1)
  1. MIEBO [Suspect]
     Active Substance: PERFLUOROHEXYLOCTANE
     Indication: Product used for unknown indication
     Dosage: INSTILL 1 DROP INTO AFFECTED EYE(S) 2 TIMES DAILY
     Route: 047

REACTIONS (2)
  - Spinal fusion surgery [Unknown]
  - Inappropriate schedule of product administration [Unknown]
